FAERS Safety Report 25835185 (Version 1)
Quarter: 2025Q3

REPORT INFORMATION
  Report Type: Report from Study
  Country: JP (occurrence: JP)
  Receive Date: 20250923
  Receipt Date: 20250923
  Transmission Date: 20251020
  Serious: Yes (Death, Hospitalization, Other)
  Sender: RANBAXY
  Company Number: JP-SUN PHARMACEUTICAL INDUSTRIES INC-2025RR-528040

PATIENT
  Age: 60 Year
  Sex: Male

DRUGS (3)
  1. SUNITINIB [Suspect]
     Active Substance: SUNITINIB
     Indication: Gastrointestinal adenocarcinoma
     Route: 065
     Dates: end: 2018
  2. IMATINIB [Suspect]
     Active Substance: IMATINIB
     Indication: Chemotherapy
     Route: 065
  3. IMATINIB [Suspect]
     Active Substance: IMATINIB
     Route: 065

REACTIONS (2)
  - Rash [Unknown]
  - Disease progression [Fatal]
